FAERS Safety Report 9213601 (Version 2)
Quarter: 2014Q1

REPORT INFORMATION
  Report Type: Spontaneous
  Country: US (occurrence: US)
  Receive Date: 20130405
  Receipt Date: 20140108
  Transmission Date: 20141002
  Serious: Yes (Other)
  Sender: FDA-Public Use
  Company Number: US-BAYER-2013-040544

PATIENT
  Age: 26 Year
  Sex: Female

DRUGS (4)
  1. YAZ [Suspect]
     Dosage: UNK
     Dates: start: 20110506, end: 20110617
  2. YASMIN [Suspect]
     Dosage: UNK
     Dates: start: 20110506, end: 20110617
  3. OCELLA [Suspect]
     Dosage: UNK
     Dates: start: 20110506, end: 20110617
  4. GIANVI [Suspect]
     Dosage: UNK
     Dates: start: 20110506, end: 20110617

REACTIONS (9)
  - Gallbladder injury [None]
  - Cholecystitis chronic [None]
  - Deep vein thrombosis [None]
  - Injury [None]
  - Pain [None]
  - Emotional distress [None]
  - Anxiety [None]
  - General physical health deterioration [None]
  - Pain [None]
